FAERS Safety Report 4693145-2 (Version None)
Quarter: 2005Q2

REPORT INFORMATION
  Report Type: 
  Country: None (occurrence: None)
  Receive Date: 20050614
  Receipt Date: 20050602
  Transmission Date: 20051028
  Serious: Yes (Hospitalization)
  Sender: FDA-Public Use
  Company Number: SAGL-ZLB/05/55/DEN

PATIENT
  Age: 67 Year
  Sex: Male

DRUGS (1)
  1. SANDOGLOBULIN [Suspect]
     Indication: BLOOD IMMUNOGLOBULIN A
     Dosage: 24. G, I.V.
     Route: 042
     Dates: start: 20050401, end: 20050401

REACTIONS (3)
  - BLOOD PRESSURE INCREASED [None]
  - BODY TEMPERATURE INCREASED [None]
  - CHILLS [None]
